FAERS Safety Report 8607794 (Version 3)
Quarter: 2012Q4

REPORT INFORMATION
  Report Type: 
  Country: FR (occurrence: FR)
  Receive Date: 20120611
  Receipt Date: 20121026
  Transmission Date: 20130627
  Serious: Yes (Hospitalization)
  Sender: FDA-Public Use
  Company Number: FR-SANOFI-AVENTIS-2012SA038433

PATIENT
  Age: 70 Year
  Sex: Female

DRUGS (4)
  1. PLAQUENIL [Suspect]
     Indication: SJOGREN^S SYNDROME
     Route: 048
     Dates: start: 201109, end: 20120416
  2. EXTOVYL [Suspect]
     Indication: MENIERE^S DISEASE
     Route: 048
     Dates: start: 2010
  3. ATACAND [Suspect]
     Indication: HYPERTENSION ARTERIAL
     Route: 048
     Dates: start: 2010
  4. TANGANIL [Suspect]
     Indication: MENIERE^S DISEASE
     Route: 048
     Dates: start: 2010

REACTIONS (3)
  - Hepatocellular injury [Recovered/Resolved]
  - Polymyositis [Recovering/Resolving]
  - Rhabdomyolysis [Recovered/Resolved]
